FAERS Safety Report 19040240 (Version 1)
Quarter: 2021Q1

REPORT INFORMATION
  Report Type: Spontaneous
  Country: SE (occurrence: SE)
  Receive Date: 20210323
  Receipt Date: 20210323
  Transmission Date: 20210420
  Serious: Yes (Other)
  Sender: FDA-Public Use
  Company Number: SE-TEVA-2021-SE-1892228

PATIENT
  Age: 40 Year
  Sex: Female
  Weight: 59 kg

DRUGS (1)
  1. OMEPRAZOL TEVA 20 MG ENTEROKAPSEL, HARD [Suspect]
     Active Substance: OMEPRAZOLE
     Indication: GASTRITIS
     Dosage: 20 MILLIGRAM DAILY; ENTEROCAPSULE, HARD
     Route: 065
     Dates: start: 20210211, end: 20210216

REACTIONS (16)
  - Palpitations [Recovering/Resolving]
  - Fatigue [Recovering/Resolving]
  - Nausea [Recovering/Resolving]
  - Dysphagia [Recovering/Resolving]
  - Depressed level of consciousness [Recovering/Resolving]
  - Hallucination, visual [Recovering/Resolving]
  - Pharyngeal swelling [Recovering/Resolving]
  - Skin discolouration [Recovering/Resolving]
  - Diplopia [Recovering/Resolving]
  - Haematochezia [Recovering/Resolving]
  - Asthenia [Recovering/Resolving]
  - Chromaturia [Recovering/Resolving]
  - Confusional state [Recovering/Resolving]
  - Presyncope [Recovering/Resolving]
  - Vision blurred [Recovering/Resolving]
  - Vertigo [Recovering/Resolving]

NARRATIVE: CASE EVENT DATE: 20210211
